FAERS Safety Report 9069667 (Version 2)
Quarter: 2013Q2

REPORT INFORMATION
  Report Type: Report from Study
  Country: US (occurrence: US)
  Receive Date: 20130215
  Receipt Date: 20130614
  Transmission Date: 20140414
  Serious: Yes (Hospitalization)
  Sender: FDA-Public Use
  Company Number: US-ABBOTT-13P-163-1045917-00

PATIENT
  Age: 50 Year
  Sex: Female
  Weight: 55.39 kg

DRUGS (8)
  1. HUMIRA [Suspect]
     Route: 058
     Dates: start: 201210, end: 201210
  2. HUMIRA [Suspect]
     Route: 058
     Dates: start: 201211, end: 201301
  3. HUMIRA [Suspect]
     Route: 058
     Dates: start: 201301
  4. IMURAN [Concomitant]
     Indication: CROHN^S DISEASE
  5. ASACOL [Concomitant]
     Indication: CROHN^S DISEASE
  6. FOLIC ACID [Concomitant]
     Indication: VITAMIN SUPPLEMENTATION
  7. UNKNOWN MEDICATION [Concomitant]
     Indication: HYPERSENSITIVITY
  8. HUMIRA [Suspect]
     Indication: CROHN^S DISEASE
     Route: 058
     Dates: start: 201210, end: 201210

REACTIONS (7)
  - Intestinal anastomosis complication [Recovered/Resolved]
  - Intestinal mucosal hypertrophy [Unknown]
  - Dilatation intrahepatic duct acquired [Not Recovered/Not Resolved]
  - Intestinal stenosis [Unknown]
  - Small intestinal obstruction [Recovered/Resolved]
  - Injection site pain [Recovered/Resolved]
  - Injection site discomfort [Recovered/Resolved]
